FAERS Safety Report 6360496-5 (Version None)
Quarter: 2009Q3

REPORT INFORMATION
  Report Type: 
  Country: None (occurrence: None)
  Receive Date: 20090917
  Receipt Date: 20090909
  Transmission Date: 20100115
  Serious: Yes (Other)
  Sender: FDA-Public Use
  Company Number: FR-MERCK-0909FRA00020

PATIENT
  Age: 26 Year
  Sex: Male

DRUGS (6)
  1. PRIMAXIN [Suspect]
     Indication: UROSEPSIS
     Route: 042
     Dates: start: 20090220, end: 20090303
  2. DESLORATADINE [Suspect]
     Route: 048
     Dates: start: 20081222, end: 20090302
  3. OLANZAPINE [Suspect]
     Route: 048
     Dates: start: 20081211, end: 20090302
  4. GUAIFENESIN AND OXOMEMAZINE AND SODIUM BENZOATE [Suspect]
     Route: 048
     Dates: start: 20090211, end: 20090302
  5. PREDNISONE [Suspect]
     Route: 048
     Dates: start: 20081231, end: 20090302
  6. PENTAMIDINE ISETHIONATE [Concomitant]

REACTIONS (3)
  - CHOLESTASIS [None]
  - CYTOLYTIC HEPATITIS [None]
  - PANCYTOPENIA [None]
